FAERS Safety Report 6346985-8 (Version None)
Quarter: 2009Q3

REPORT INFORMATION
  Report Type: 
  Country: None (occurrence: None)
  Receive Date: 20090908
  Receipt Date: 20090908
  Transmission Date: 20100115
  Serious: Yes (Other)
  Sender: FDA-Public Use
  Company Number: None

PATIENT
  Age: 40 Year
  Sex: Female
  Weight: 80.7403 kg

DRUGS (1)
  1. CLINDAMYCIN HCL [Suspect]
     Indication: STAPHYLOCOCCAL INFECTION
     Dosage: 300MG 4X DAILY PO
     Route: 048
     Dates: start: 20090905, end: 20090905

REACTIONS (2)
  - CHEST PAIN [None]
  - FATIGUE [None]
